FAERS Safety Report 25795391 (Version 1)
Quarter: 2025Q3

REPORT INFORMATION
  Report Type: Spontaneous
  Country: JP (occurrence: JP)
  Receive Date: 20250912
  Receipt Date: 20250912
  Transmission Date: 20251020
  Serious: Yes (Other)
  Sender: NOVARTIS
  Company Number: JP-002147023-NVSJ2025JP008939

PATIENT

DRUGS (1)
  1. NEORAL [Suspect]
     Active Substance: CYCLOSPORINE
     Indication: C3 glomerulopathy
     Route: 048

REACTIONS (4)
  - C3 glomerulopathy [Unknown]
  - Disease progression [Unknown]
  - Renal impairment [Unknown]
  - Off label use [Unknown]
